FAERS Safety Report 15051501 (Version 3)
Quarter: 2018Q3

REPORT INFORMATION
  Report Type: Spontaneous
  Country: JP (occurrence: JP)
  Receive Date: 20180622
  Receipt Date: 20180911
  Transmission Date: 20181010
  Serious: Yes (Hospitalization)
  Sender: FDA-Public Use
  Company Number: JP-EISAI MEDICAL RESEARCH-EC-2018-041680

PATIENT
  Age: 23 Year
  Sex: Male

DRUGS (4)
  1. ZYPREXA [Concomitant]
     Active Substance: OLANZAPINE
     Indication: ANGER
     Dates: start: 2013
  2. DEPROMEL [Concomitant]
     Active Substance: FLUVOXAMINE
     Indication: OBSESSIVE THOUGHTS
     Dates: start: 2013
  3. FYCOMPA [Suspect]
     Active Substance: PERAMPANEL
     Indication: EPILEPSY
     Dosage: UNKNOWN
     Dates: start: 201803, end: 2018
  4. DEPAKENE [Concomitant]
     Active Substance: VALPROIC ACID
     Indication: ANGER
     Dates: start: 2013

REACTIONS (1)
  - Aggression [Recovered/Resolved]

NARRATIVE: CASE EVENT DATE: 201803
